FAERS Safety Report 10496519 (Version 1)
Quarter: 2014Q4

REPORT INFORMATION
  Report Type: Spontaneous
  Country: GB (occurrence: GB)
  Receive Date: 20141004
  Receipt Date: 20141004
  Transmission Date: 20150528
  Serious: Yes (Other)
  Sender: FDA-Public Use
  Company Number: GB-009507513-1409GBR013275

PATIENT
  Age: 26 Year
  Sex: Female
  Weight: 53.97 kg

DRUGS (3)
  1. BETAMETHASONE DIPROPIONATE. [Suspect]
     Active Substance: BETAMETHASONE DIPROPIONATE
     Indication: DERMATITIS ATOPIC
     Dosage: 1 DF, BID
     Route: 061
     Dates: start: 200808, end: 20121111
  2. ELOCON [Suspect]
     Active Substance: MOMETASONE FUROATE
     Indication: DERMATITIS ALLERGIC
     Dosage: APPLIED TWICE DAILY
     Route: 061
     Dates: start: 200809, end: 20121111
  3. BETNOVATE [Suspect]
     Active Substance: BETAMETHASONE
     Indication: DERMATITIS ATOPIC
     Dosage: 1 DF, BID
     Route: 061
     Dates: start: 200808, end: 201211

REACTIONS (18)
  - Eye swelling [Recovered/Resolved]
  - Body temperature increased [Recovered/Resolved]
  - Fatigue [Recovered/Resolved]
  - Arthralgia [Recovered/Resolved]
  - Pain [Recovered/Resolved]
  - Ear swelling [Recovered/Resolved]
  - Pruritus [Recovered/Resolved]
  - Endocrine disorder [None]
  - Hyperaesthesia [Recovered/Resolved]
  - Skin wrinkling [Recovered/Resolved]
  - Rash erythematous [Recovered/Resolved]
  - Urticaria [Recovered/Resolved]
  - Night sweats [Recovered/Resolved]
  - Skin exfoliation [Recovered/Resolved]
  - Incorrect drug administration duration [Unknown]
  - Skin burning sensation [Recovered/Resolved]
  - Withdrawal syndrome [Recovered/Resolved]
  - Swelling face [Recovered/Resolved]

NARRATIVE: CASE EVENT DATE: 200811
